FAERS Safety Report 7201228-8 (Version None)
Quarter: 2010Q4

REPORT INFORMATION
  Report Type: 
  Country: None (occurrence: None)
  Receive Date: 20101227
  Receipt Date: 20101227
  Transmission Date: 20110411
  Serious: Yes (Hospitalization)
  Sender: FDA-Public Use
  Company Number: None

PATIENT
  Sex: Male
  Weight: 79.3795 kg

DRUGS (2)
  1. XOPENEX [Suspect]
     Indication: ASTHMA
     Dosage: 2 PUFFS 4 TIMES DAILY PRN INHAL
     Route: 055
     Dates: start: 19910101, end: 20101028
  2. XOPENEX [Suspect]
     Indication: MULTIPLE ALLERGIES
     Dosage: 2 PUFFS 4 TIMES DAILY PRN INHAL
     Route: 055
     Dates: start: 19910101, end: 20101028

REACTIONS (3)
  - DYSPNOEA [None]
  - NO THERAPEUTIC RESPONSE [None]
  - PRODUCT QUALITY ISSUE [None]
